FAERS Safety Report 10242038 (Version 2)
Quarter: 2014Q4

REPORT INFORMATION
  Report Type: Spontaneous
  Country: RO (occurrence: RO)
  Receive Date: 20140617
  Receipt Date: 20141124
  Transmission Date: 20150528
  Serious: Yes (Life-Threatening)
  Sender: FDA-Public Use
  Company Number: PHHY2014DE070572

PATIENT
  Age: 52 Year
  Sex: Male

DRUGS (4)
  1. LORAZEPAM. [Suspect]
     Active Substance: LORAZEPAM
     Indication: BIPOLAR DISORDER
     Route: 065
  2. VALPROIC ACID. [Suspect]
     Active Substance: VALPROIC ACID
     Indication: BIPOLAR DISORDER
     Route: 065
  3. LAMOTRIGINE. [Suspect]
     Active Substance: LAMOTRIGINE
     Indication: BIPOLAR DISORDER
     Route: 065
  4. OLANZAPINE. [Suspect]
     Active Substance: OLANZAPINE
     Indication: BIPOLAR DISORDER
     Route: 065

REACTIONS (11)
  - Pyrexia [Unknown]
  - Enanthema [Unknown]
  - Corneal disorder [Unknown]
  - Rash [Unknown]
  - Skin erosion [Unknown]
  - Foreign body sensation in eyes [Unknown]
  - Conjunctivitis [Unknown]
  - Toxic epidermal necrolysis [Unknown]
  - Photophobia [Unknown]
  - Blister [Recovering/Resolving]
  - Conjunctival hyperaemia [Unknown]
